FAERS Safety Report 12083675 (Version 6)
Quarter: 2016Q3

REPORT INFORMATION
  Report Type: Spontaneous
  Country: FR (occurrence: FR)
  Receive Date: 20160217
  Receipt Date: 20160812
  Transmission Date: 20161109
  Serious: Yes (Hospitalization)
  Sender: FDA-Public Use
  Company Number: FR-PFIZER INC-2016079958

PATIENT
  Age: 86 Year
  Sex: Male
  Weight: 59 kg

DRUGS (15)
  1. CORDARONE [Suspect]
     Active Substance: AMIODARONE HYDROCHLORIDE
     Dosage: 200 MG, EVERYDAY EXCEPT SATURDAY AND SUNDAY)
     Route: 048
     Dates: start: 20151029, end: 20160117
  2. MIANSERIN HYDROCHLORIDE [Suspect]
     Active Substance: MIANSERIN HYDROCHLORIDE
     Dosage: 1 DF, DAILY
     Route: 065
     Dates: start: 20160115
  3. AMLOR [Concomitant]
     Active Substance: AMLODIPINE BESYLATE
     Dosage: 10 MG, 1X/DAY
     Route: 048
     Dates: start: 20151029
  4. NOVORAPID [Concomitant]
     Active Substance: INSULIN ASPART
     Dosage: 6 IU, 1X/DAY
     Route: 058
     Dates: start: 20151116
  5. MOVICOL [Concomitant]
     Active Substance: POLYETHYLENE GLYCOL 3350\POTASSIUM CHLORIDE\SODIUM BICARBONATE\SODIUM CHLORIDE
     Dosage: 1 DF, 1X/DAY
     Route: 048
     Dates: start: 20151029, end: 20160126
  6. INEXIUM [Suspect]
     Active Substance: ESOMEPRAZOLE
     Dosage: 1 DF, DAILY
     Route: 048
     Dates: start: 20151029, end: 20160117
  7. NOVOMIX [Concomitant]
     Active Substance: INSULIN ASPART
     Dosage: 2 IU IN THE MORNING + 16 IU IN THE EVENING
     Route: 058
     Dates: start: 20151116
  8. DIFFU K [Concomitant]
     Active Substance: POTASSIUM CHLORIDE
     Dosage: 1200 MG, 3X/DAY
     Route: 048
     Dates: start: 20151029, end: 20160119
  9. CALCIDIA [Concomitant]
     Active Substance: CALCIUM POLYCARBOPHIL
     Dosage: 1.54 G, 2X/DAY
     Route: 048
     Dates: start: 20151029
  10. DIAMOX SEQUELS [Concomitant]
     Active Substance: ACETAZOLAMIDE
     Dosage: 750 MG, DAILY
     Route: 048
     Dates: start: 20151116, end: 20160119
  11. KARDEGIC [Concomitant]
     Active Substance: ASPIRIN LYSINE
     Dosage: 75 MG, 1X/DAY
     Route: 048
     Dates: start: 20151029, end: 20160126
  12. UVEDOSE [Concomitant]
     Active Substance: CHOLECALCIFEROL
     Dosage: 100000 IU, MONTHLY
     Route: 048
  13. TAHOR [Suspect]
     Active Substance: ATORVASTATIN CALCIUM
     Dosage: 1 DF, DAILY
     Route: 048
     Dates: start: 20151029, end: 20160117
  14. RENVELA [Concomitant]
     Active Substance: SEVELAMER CARBONATE
     Dosage: 2.4 G, 2X/DAY
     Route: 048
     Dates: start: 20151029, end: 20160126
  15. LASILIX SPECIAL [Concomitant]
     Active Substance: FUROSEMIDE
     Dosage: 500 MG, 2X/DAY
     Route: 048
     Dates: start: 20151116, end: 20160126

REACTIONS (4)
  - Depression [Unknown]
  - Cholestasis [Recovered/Resolved]
  - Weight decreased [Unknown]
  - Hepatocellular injury [Recovered/Resolved]

NARRATIVE: CASE EVENT DATE: 201601
